FAERS Safety Report 24441936 (Version 2)
Quarter: 2024Q4

REPORT INFORMATION
  Report Type: Report from Study
  Country: CH (occurrence: CH)
  Receive Date: 20241016
  Receipt Date: 20241017
  Transmission Date: 20250115
  Serious: No
  Sender: ROCHE
  Company Number: CH-ROCHE-3514607

PATIENT
  Age: 4 Year
  Sex: Male
  Weight: 19.0 kg

DRUGS (2)
  1. EMICIZUMAB [Suspect]
     Active Substance: EMICIZUMAB
     Indication: Factor VIII deficiency
     Route: 058
     Dates: start: 20210817, end: 20210907
  2. EMICIZUMAB [Suspect]
     Active Substance: EMICIZUMAB
     Route: 058
     Dates: start: 20210921

REACTIONS (1)
  - Hypersensitivity [Recovered/Resolved]

NARRATIVE: CASE EVENT DATE: 20240207
